FAERS Safety Report 6487661-0 (Version None)
Quarter: 2009Q4

REPORT INFORMATION
  Report Type: 
  Country: None (occurrence: None)
  Receive Date: 20091210
  Receipt Date: 20091130
  Transmission Date: 20100525
  Serious: Yes (Other)
  Sender: FDA-Public Use
  Company Number: FR-BRISTOL-MYERS SQUIBB COMPANY-14870018

PATIENT
  Age: 76 Year
  Sex: Female

DRUGS (2)
  1. ERBITUX [Suspect]
     Indication: COLORECTAL CANCER METASTATIC
     Dosage: GIVEN ON 03NOV09-03NOV09, 250 MG/M2
     Route: 042
     Dates: start: 20091019, end: 20091019
  2. FLUOROURACIL [Suspect]
     Indication: COLORECTAL CANCER METASTATIC
     Dosage: 600MG(19OCT09);950MG(03NOV09);600MG(03NOV09)
     Route: 042
     Dates: start: 20091019

REACTIONS (4)
  - NEUTROPENIA [None]
  - ORAL CANDIDIASIS [None]
  - SKIN REACTION [None]
  - THROMBOCYTOPENIA [None]
